FAERS Safety Report 14664656 (Version 1)
Quarter: 2018Q1

REPORT INFORMATION
  Report Type: Spontaneous
  Country: GB (occurrence: GB)
  Receive Date: 20180321
  Receipt Date: 20180321
  Transmission Date: 20180509
  Serious: Yes (Life-Threatening)
  Sender: FDA-Public Use
  Company Number: GB-TEVA-2018-GB-872157

PATIENT
  Age: 66 Year
  Sex: Female

DRUGS (1)
  1. ATORVASTATIN CALCIUM. [Suspect]
     Active Substance: ATORVASTATIN CALCIUM
     Route: 048

REACTIONS (5)
  - Chest pain [Unknown]
  - Drug-induced liver injury [Unknown]
  - Pain [Unknown]
  - Liver function test abnormal [Unknown]
  - Liver injury [Unknown]
